FAERS Safety Report 16270541 (Version 2)
Quarter: 2019Q2

REPORT INFORMATION
  Report Type: Spontaneous
  Country: CN (occurrence: CN)
  Receive Date: 20190503
  Receipt Date: 20190510
  Transmission Date: 20190711
  Serious: Yes (Other)
  Sender: FDA-Public Use
  Company Number: CN-PFIZER INC-2019186249

PATIENT
  Age: 38 Year
  Sex: Male
  Weight: 60 kg

DRUGS (10)
  1. BUDESONIDE/FORMOTEROL FUMARATE [Suspect]
     Active Substance: BUDESONIDE\FORMOTEROL FUMARATE
     Dosage: 160UG/4.5UG, TWICE A DAY
  2. METHYLPREDNISOLONE SODIUM SUCCINATE. [Suspect]
     Active Substance: METHYLPREDNISOLONE SODIUM SUCCINATE
     Indication: ASTHMA
     Dosage: 40 MG, 1X/DAY
     Route: 041
     Dates: start: 20160801, end: 20160807
  3. LEVOFLOXACIN. [Concomitant]
     Active Substance: LEVOFLOXACIN
     Dosage: 0.6 GTT, 1X/DAY
     Route: 041
     Dates: start: 20160801, end: 20160807
  4. SALBUTAMOL SULFATE [Concomitant]
     Active Substance: ALBUTEROL SULFATE
     Indication: ASTHMA
     Dosage: UNK
     Route: 055
  5. BUDESONIDE/FORMOTEROL FUMARATE [Suspect]
     Active Substance: BUDESONIDE\FORMOTEROL FUMARATE
     Indication: ASTHMA
     Dosage: 160UG-4.5UG
     Dates: start: 20160801
  6. DIPROPHYLLINE [Concomitant]
     Active Substance: DYPHYLLINE
     Indication: ASTHMA
     Dosage: 0.5 G, 1X/DAY
     Route: 041
     Dates: start: 20160801, end: 20160807
  7. OMEPRAZOLE. [Concomitant]
     Active Substance: OMEPRAZOLE
     Dosage: 40 MG, 1X/DAY
     Route: 041
     Dates: start: 20160801, end: 20160807
  8. TIOTROPIUM BROMIDE [Concomitant]
     Active Substance: TIOTROPIUM BROMIDE
     Dosage: UNK
     Route: 055
     Dates: start: 20160801
  9. SALBUTAMOL [Concomitant]
     Active Substance: ALBUTEROL
     Dosage: UNK
     Route: 055
     Dates: start: 20160801, end: 20160807
  10. TIOTROPIUM BROMIDE [Concomitant]
     Active Substance: TIOTROPIUM BROMIDE
     Dosage: 18 UG, 1X/DAY

REACTIONS (1)
  - Chorioretinopathy [Not Recovered/Not Resolved]

NARRATIVE: CASE EVENT DATE: 20160807
